FAERS Safety Report 5778444-5 (Version None)
Quarter: 2008Q2

REPORT INFORMATION
  Report Type: 
  Country: None (occurrence: None)
  Receive Date: 20080619
  Receipt Date: 20080608
  Transmission Date: 20081010
  Serious: Yes (Other)
  Sender: FDA-Public Use
  Company Number: TR-WYE-H04405108

PATIENT
  Age: 58 Year
  Sex: Male

DRUGS (1)
  1. PIPERACILLIN AND TAZOBACTAM [Suspect]
     Indication: EMPYEMA
     Dosage: UNKNOWN

REACTIONS (1)
  - BONE MARROW FAILURE [None]
